FAERS Safety Report 25585602 (Version 1)
Quarter: 2025Q3

REPORT INFORMATION
  Report Type: Spontaneous
  Country: US (occurrence: US)
  Receive Date: 20250721
  Receipt Date: 20250721
  Transmission Date: 20251020
  Serious: No
  Sender: Haleon PLC
  Company Number: US-HALEON-2253427

PATIENT
  Age: 83 Year
  Sex: Female

DRUGS (2)
  1. VOLTAREN ARTHRITIS PAIN [Suspect]
     Active Substance: DICLOFENAC SODIUM
     Indication: Musculoskeletal discomfort
     Dates: start: 20250718, end: 20250718
  2. VOLTAREN ARTHRITIS PAIN [Suspect]
     Active Substance: DICLOFENAC SODIUM
     Indication: Musculoskeletal discomfort

REACTIONS (3)
  - Drug effective for unapproved indication [Unknown]
  - Product use issue [Unknown]
  - Product use in unapproved indication [Unknown]
